FAERS Safety Report 20884352 (Version 1)
Quarter: 2022Q2

REPORT INFORMATION
  Report Type: Spontaneous
  Country: US (occurrence: None)
  Receive Date: 20220527
  Receipt Date: 20220527
  Transmission Date: 20220721
  Serious: Yes (Hospitalization)
  Sender: FDA-Public Use
  Company Number: None

PATIENT
  Age: 52 Year
  Sex: Female
  Weight: 55.8 kg

DRUGS (12)
  1. GATTEX [Suspect]
     Active Substance: TEDUGLUTIDE\WATER
     Indication: Short-bowel syndrome
     Dosage: OTHER QUANTITY : .3 INJECTION(S);?FREQUENCY : DAILY;?
     Route: 058
     Dates: start: 20211228, end: 20220420
  2. LACTATED RINGERS SOLUTION [Concomitant]
     Active Substance: CALCIUM CHLORIDE\POTASSIUM CHLORIDE\SODIUM CHLORIDE\SODIUM LACTATE
  3. GABAPENTIN [Concomitant]
     Active Substance: GABAPENTIN
  4. NP THYROID [Concomitant]
     Active Substance: LEVOTHYROXINE\LIOTHYRONINE
  5. DURAGESIC [Concomitant]
     Active Substance: FENTANYL
  6. DIVIGEL [Concomitant]
     Active Substance: ESTRADIOL
  7. flexaril [Concomitant]
  8. PROMETHAZINE [Concomitant]
     Active Substance: PROMETHAZINE HYDROCHLORIDE
  9. DICYCLOMINE [Concomitant]
     Active Substance: DICYCLOMINE HYDROCHLORIDE
  10. TYLENOL [Concomitant]
     Active Substance: ACETAMINOPHEN
  11. centrum chewable [Concomitant]
  12. VITAMIN D NOS [Concomitant]
     Active Substance: VITAMIN D NOS

REACTIONS (4)
  - Small intestinal obstruction [None]
  - Ascites [None]
  - Volvulus [None]
  - Inflammation [None]

NARRATIVE: CASE EVENT DATE: 20220420
